FAERS Safety Report 21668792 (Version 1)
Quarter: 2022Q4

REPORT INFORMATION
  Report Type: Spontaneous
  Country: CH (occurrence: CH)
  Receive Date: 20221201
  Receipt Date: 20221201
  Transmission Date: 20230113
  Serious: Yes (Hospitalization)
  Sender: FDA-Public Use
  Company Number: None

PATIENT
  Age: 46 Year
  Sex: Female
  Weight: 68 kg

DRUGS (11)
  1. CERTICAN [Interacting]
     Active Substance: EVEROLIMUS
     Indication: Heart transplant
     Dosage: 0.75 MG, Q12H (1-0-1-0)
     Route: 048
     Dates: start: 20180418, end: 20220905
  2. PROGRAF [Interacting]
     Active Substance: TACROLIMUS
     Indication: Heart transplant
     Dosage: 2 MG, Q12H, 2-0-2-0
     Route: 048
     Dates: start: 20180418, end: 20220905
  3. RITONAVIR [Interacting]
     Active Substance: RITONAVIR
     Indication: COVID-19
     Dosage: 100 MG, Q12H
     Route: 048
     Dates: start: 20220903, end: 20220904
  4. PREDNISONE [Concomitant]
     Active Substance: PREDNISONE
     Indication: Product used for unknown indication
     Dosage: 5 MG, Q24H, 1-0-0-0
     Route: 048
  5. MYFORTIC [Concomitant]
     Active Substance: MYCOPHENOLATE SODIUM
     Indication: Product used for unknown indication
     Dosage: 360 MG, Q12H, 1-0-0
     Route: 048
  6. MAGNESIUM ASPARTATE HYDROCHLORIDE [Concomitant]
     Active Substance: MAGNESIUM ASPARTATE HYDROCHLORIDE
     Indication: Product used for unknown indication
     Dosage: 2.5 MMOL, Q12H, 1-0-1-0
     Route: 048
  7. ESCITALOPRAM OXALATE [Concomitant]
     Active Substance: ESCITALOPRAM OXALATE
     Indication: Product used for unknown indication
     Dosage: 5 MG, Q48H, 0.5-0-0-0
     Route: 048
  8. ESCITALOPRAM OXALATE [Concomitant]
     Active Substance: ESCITALOPRAM OXALATE
     Dosage: 10 MG, Q48H, 1-0-0-0
     Route: 048
  9. CALCIUM\CHOLECALCIFEROL [Concomitant]
     Active Substance: CALCIUM\CHOLECALCIFEROL
     Indication: Product used for unknown indication
     Dosage: 1 DOSAGE FORM, QD, 0-1-0-0
     Route: 048
  10. ALDACTONE [Concomitant]
     Active Substance: SPIRONOLACTONE
     Indication: Product used for unknown indication
     Dosage: 25 MG, QD, 1-0-0-0
     Route: 048
  11. PRAVASTATIN [Concomitant]
     Active Substance: PRAVASTATIN
     Indication: Product used for unknown indication
     Dosage: 20 MG, QD, 0-0-0.5-0
     Route: 048

REACTIONS (4)
  - Drug interaction [Recovering/Resolving]
  - Drug level above therapeutic [Recovering/Resolving]
  - Headache [Recovering/Resolving]
  - Diarrhoea [Recovering/Resolving]

NARRATIVE: CASE EVENT DATE: 20220905
